FAERS Safety Report 7171523-X (Version None)
Quarter: 2010Q4

REPORT INFORMATION
  Report Type: 
  Country: None (occurrence: None)
  Receive Date: 20101217
  Receipt Date: 20101209
  Transmission Date: 20110411
  Serious: Yes (Life-Threatening, Hospitalization)
  Sender: FDA-Public Use
  Company Number: CH-PFIZER INC-2010172815

PATIENT
  Age: 69 Year
  Sex: Male

DRUGS (12)
  1. PANTOZOL [Suspect]
     Dosage: 40 MG, 1X/DAY
     Route: 048
     Dates: end: 20101028
  2. BENERVA [Concomitant]
     Dosage: 100 MG, 3X/DAY
     Route: 042
     Dates: start: 20101103
  3. CREON [Concomitant]
     Dosage: 2 DF, 3X/DAY
     Route: 048
  4. CALCIMAGON D3 [Concomitant]
     Dosage: 1 IN 1 DAY
  5. METFORMIN [Concomitant]
     Dosage: 850 MG, 3X/DAY
     Route: 048
     Dates: end: 20101101
  6. ASPIRIN [Concomitant]
     Dosage: 100 MG, 1X/DAY
     Route: 048
  7. SPASMO-URGENIN [Concomitant]
     Dosage: 20 MG, 2X/DAY
     Route: 048
     Dates: end: 20101101
  8. LANTUS [Concomitant]
     Dosage: 6 DOSAGE FORMS, 1 IN 1 DAY
     Route: 058
  9. NEURORUBIN [Concomitant]
     Dosage: 1 DOSAGE FORMS, 1 IN 1 DAY
     Route: 030
     Dates: end: 20101101
  10. SEROQUEL [Concomitant]
     Dosage: 25 MG, 1X/DAY
     Route: 048
     Dates: end: 20101001
  11. DORMICUM [Concomitant]
     Dosage: 1200 MG, 1X/DAY
     Route: 042
     Dates: end: 20101002
  12. CORDARONE [Concomitant]
     Dosage: 1200 MG, 1X/DAY
     Route: 042
     Dates: end: 20101002

REACTIONS (9)
  - ASTHENIA [None]
  - ATRIAL FLUTTER [None]
  - DELIRIUM [None]
  - GAIT DISTURBANCE [None]
  - HYPOCALCAEMIA [None]
  - HYPOMAGNESAEMIA [None]
  - NYSTAGMUS [None]
  - TACHYCARDIA [None]
  - VERTIGO [None]
